FAERS Safety Report 9713703 (Version 2)
Quarter: 2014Q1

REPORT INFORMATION
  Report Type: Spontaneous
  Country: IT (occurrence: IT)
  Receive Date: 20131126
  Receipt Date: 20140122
  Transmission Date: 20141002
  Serious: Yes (Other)
  Sender: FDA-Public Use
  Company Number: IT-PFIZER INC-2013333968

PATIENT
  Age: 79 Year
  Sex: Male

DRUGS (3)
  1. VFEND [Suspect]
     Indication: ASPERGILLUS INFECTION
     Dosage: 400 MG, TOTAL
     Route: 048
     Dates: start: 20131107, end: 20131107
  2. OLMESARTAN [Concomitant]
     Indication: HYPERTENSION
     Dosage: 1 DF, UNK
     Route: 048
  3. URBASON SOLUBILE [Concomitant]
     Dosage: 40 MG, UNK
     Route: 042
     Dates: start: 20131102, end: 20131107

REACTIONS (3)
  - Tremor [Recovered/Resolved]
  - Hallucination, visual [Recovered/Resolved]
  - Hyperhidrosis [Recovered/Resolved]
